FAERS Safety Report 21280887 (Version 2)
Quarter: 2022Q3

REPORT INFORMATION
  Report Type: Report from Study
  Country: MA (occurrence: MA)
  Receive Date: 20220901
  Receipt Date: 20220906
  Transmission Date: 20221027
  Serious: Yes (Death)
  Sender: FDA-Public Use
  Company Number: MA-NOVARTISPH-NVSC2021MA042510

PATIENT
  Age: 38 Year
  Sex: Female

DRUGS (1)
  1. KISQALI [Suspect]
     Active Substance: RIBOCICLIB
     Indication: Breast cancer
     Dosage: 200 MG, TID
     Route: 048
     Dates: start: 20210202

REACTIONS (6)
  - Death [Fatal]
  - Bone pain [Unknown]
  - Spinal pain [Unknown]
  - Pelvic pain [Unknown]
  - Tumour marker increased [Unknown]
  - Liver disorder [Unknown]

NARRATIVE: CASE EVENT DATE: 20210712
